FAERS Safety Report 16326164 (Version 1)
Quarter: 2019Q2

REPORT INFORMATION
  Report Type: Report from Study
  Country: DO (occurrence: DO)
  Receive Date: 20190517
  Receipt Date: 20190517
  Transmission Date: 20190711
  Serious: Yes (Other)
  Sender: FDA-Public Use
  Company Number: DO-SA-2019SA134405

PATIENT
  Age: 54 Year
  Sex: Female

DRUGS (1)
  1. CLOPIDOGREL BISULFATE. [Suspect]
     Active Substance: CLOPIDOGREL BISULFATE
     Indication: THROMBOSIS PROPHYLAXIS
     Dosage: 1 DF (75 MG OF CLOPIDOGREL), QD
     Route: 048
     Dates: start: 201808

REACTIONS (2)
  - Pain [Unknown]
  - Immobile [Unknown]
